FAERS Safety Report 13667430 (Version 2)
Quarter: 2017Q3

REPORT INFORMATION
  Report Type: Report from Study
  Country: None (occurrence: US)
  Receive Date: 20170620
  Receipt Date: 20170831
  Transmission Date: 20171127
  Serious: Yes (Other)
  Sender: FDA-Public Use
  Company Number: US-ABBVIE-17K-163-1941679-00

PATIENT
  Age: 67 Year
  Sex: Female
  Weight: 74.91 kg

DRUGS (13)
  1. TETRACYCLINE [Suspect]
     Active Substance: TETRACYCLINE
     Indication: PRODUCT USED FOR UNKNOWN INDICATION
     Route: 065
  2. HUMIRA [Suspect]
     Active Substance: ADALIMUMAB
     Indication: PSORIATIC ARTHROPATHY
     Route: 058
     Dates: start: 201704, end: 201705
  3. HUMIRA [Suspect]
     Active Substance: ADALIMUMAB
     Indication: RHEUMATOID ARTHRITIS
     Route: 058
     Dates: start: 2015, end: 201703
  4. NIACIN ER [Concomitant]
     Active Substance: NIACIN
     Indication: PRODUCT USED FOR UNKNOWN INDICATION
  5. AMOXICILLIN. [Concomitant]
     Active Substance: AMOXICILLIN
     Indication: PRODUCT USED FOR UNKNOWN INDICATION
  6. PERCOCET [Concomitant]
     Active Substance: ACETAMINOPHEN\OXYCODONE HYDROCHLORIDE
     Indication: PRODUCT USED FOR UNKNOWN INDICATION
  7. LOSARTAN. [Concomitant]
     Active Substance: LOSARTAN
     Indication: PRODUCT USED FOR UNKNOWN INDICATION
  8. AMBIEN [Concomitant]
     Active Substance: ZOLPIDEM TARTRATE
     Indication: PRODUCT USED FOR UNKNOWN INDICATION
  9. METHYLPHENIDATE. [Concomitant]
     Active Substance: METHYLPHENIDATE
     Indication: PRODUCT USED FOR UNKNOWN INDICATION
  10. ESCITALOPRAM [Concomitant]
     Active Substance: ESCITALOPRAM OXALATE
     Indication: PRODUCT USED FOR UNKNOWN INDICATION
  11. MEDROL [Suspect]
     Active Substance: METHYLPREDNISOLONE
     Indication: PRODUCT USED FOR UNKNOWN INDICATION
     Route: 065
  12. PREDNISONE. [Suspect]
     Active Substance: PREDNISONE
     Indication: PRODUCT USED FOR UNKNOWN INDICATION
     Route: 065
  13. OFLOXACIN. [Concomitant]
     Active Substance: OFLOXACIN
     Indication: PRODUCT USED FOR UNKNOWN INDICATION

REACTIONS (23)
  - Seasonal allergy [Not Recovered/Not Resolved]
  - Joint instability [Not Recovered/Not Resolved]
  - Vitreous floaters [Recovering/Resolving]
  - Musculoskeletal discomfort [Not Recovered/Not Resolved]
  - Muscular weakness [Not Recovered/Not Resolved]
  - Rhinorrhoea [Not Recovered/Not Resolved]
  - Allergic cough [Not Recovered/Not Resolved]
  - Cataract [Recovering/Resolving]
  - Arthralgia [Recovering/Resolving]
  - Sneezing [Not Recovered/Not Resolved]
  - Eye inflammation [Unknown]
  - Headache [Not Recovered/Not Resolved]
  - Cataract operation complication [Unknown]
  - Nausea [Recovered/Resolved]
  - Rash macular [Recovered/Resolved]
  - Vitreous floaters [Unknown]
  - Laceration [Recovered/Resolved]
  - Staphylococcal abscess [Recovered/Resolved]
  - Ocular hyperaemia [Unknown]
  - Throat irritation [Not Recovered/Not Resolved]
  - Retinal detachment [Recovering/Resolving]
  - Fall [Recovered/Resolved]
  - Pruritus [Not Recovered/Not Resolved]

NARRATIVE: CASE EVENT DATE: 2017
